FAERS Safety Report 13357712 (Version 2)
Quarter: 2017Q2

REPORT INFORMATION
  Report Type: Spontaneous
  Country: GB (occurrence: GB)
  Receive Date: 20170322
  Receipt Date: 20170623
  Transmission Date: 20170830
  Serious: Yes (Hospitalization)
  Sender: FDA-Public Use
  Company Number: GB-ACCORD-049264

PATIENT
  Age: 82 Year
  Sex: Male

DRUGS (2)
  1. CLOPIDOGREL [Suspect]
     Active Substance: CLOPIDOGREL BISULFATE
     Indication: PRODUCT USED FOR UNKNOWN INDICATION
  2. ALFAD TEVA [Suspect]
     Active Substance: ALFACALCIDOL
     Indication: PRODUCT USED FOR UNKNOWN INDICATION

REACTIONS (8)
  - Pruritus [Unknown]
  - Circulatory collapse [Recovered/Resolved]
  - Underweight [Unknown]
  - Skin exfoliation [Unknown]
  - Vertigo [Unknown]
  - Nail discolouration [Unknown]
  - Pollakiuria [Unknown]
  - Drug prescribing error [Unknown]
